FAERS Safety Report 5074991-2 (Version None)
Quarter: 2006Q3

REPORT INFORMATION
  Report Type: 
  Country: None (occurrence: None)
  Receive Date: 20060804
  Receipt Date: 20060720
  Transmission Date: 20061208
  Serious: Yes (Hospitalization)
  Sender: FDA-Public Use
  Company Number: US017244

PATIENT
  Age: 38 Year
  Sex: Male
  Weight: 70 kg

DRUGS (1)
  1. ACTIQ (SUGAR-FREE) [Suspect]
     Indication: PAIN
     Dosage: 200 UG BUCCAL
     Route: 002
     Dates: start: 20040115

REACTIONS (9)
  - AGITATION [None]
  - CONFUSIONAL STATE [None]
  - DELUSION [None]
  - HALLUCINATION [None]
  - INTENTIONAL DRUG MISUSE [None]
  - IRRITABILITY [None]
  - MIOSIS [None]
  - OVERDOSE [None]
  - TACHYCARDIA [None]
